FAERS Safety Report 9473247 (Version 2)
Quarter: 2013Q3

REPORT INFORMATION
  Report Type: Spontaneous
  Country: US (occurrence: US)
  Receive Date: 20130823
  Receipt Date: 20130823
  Transmission Date: 20140515
  Serious: No
  Sender: FDA-Public Use
  Company Number: US-GALDERMA-US-GDP-12413254

PATIENT
  Age: 47 Year
  Sex: Male
  Weight: 66 kg

DRUGS (4)
  1. METROGEL [Suspect]
     Indication: ROSACEA
     Route: 061
     Dates: start: 201112
  2. METROGEL [Suspect]
     Route: 061
     Dates: start: 2012
  3. METROGEL [Suspect]
     Route: 061
     Dates: start: 2008, end: 201112
  4. ADVIL [Concomitant]
     Indication: PAIN
     Route: 048

REACTIONS (1)
  - Condition aggravated [Not Recovered/Not Resolved]
